FAERS Safety Report 14263294 (Version 1)
Quarter: 2017Q4

REPORT INFORMATION
  Report Type: Spontaneous
  Country: GB (occurrence: GB)
  Receive Date: 20171208
  Receipt Date: 20171208
  Transmission Date: 20180321
  Serious: Yes (Other)
  Sender: FDA-Public Use
  Company Number: GB-JNJFOC-20171121289

PATIENT
  Age: 57 Year
  Sex: Male

DRUGS (2)
  1. TREVICTA [Suspect]
     Active Substance: PALIPERIDONE PALMITATE
     Indication: BIPOLAR DISORDER
     Route: 030
     Dates: start: 20161019, end: 20171119
  2. RISPERIDONE. [Concomitant]
     Active Substance: RISPERIDONE
     Indication: HYPOMANIA
     Route: 048
     Dates: start: 20141019

REACTIONS (3)
  - Bipolar disorder [Recovered/Resolved]
  - Off label use [Unknown]
  - Product use in unapproved indication [Unknown]

NARRATIVE: CASE EVENT DATE: 20161019
